FAERS Safety Report 4662791-4 (Version None)
Quarter: 2005Q2

REPORT INFORMATION
  Report Type: 
  Country: None (occurrence: None)
  Receive Date: 20050512
  Receipt Date: 20050422
  Transmission Date: 20051028
  Serious: Yes (Death)
  Sender: FDA-Public Use
  Company Number: GBS050417243

PATIENT
  Age: 18 Year
  Sex: Female

DRUGS (1)
  1. XIGRIS [Suspect]

REACTIONS (1)
  - PULMONARY HAEMORRHAGE [None]
